FAERS Safety Report 4721959-9 (Version None)
Quarter: 2005Q3

REPORT INFORMATION
  Report Type: 
  Country: None (occurrence: None)
  Receive Date: 20050722
  Receipt Date: 20050713
  Transmission Date: 20060218
  Serious: Yes (Hospitalization, Other)
  Sender: FDA-Public Use
  Company Number: PHEH2005US07792

PATIENT
  Age: 26 Year
  Sex: Male

DRUGS (2)
  1. GLEEVEC [Suspect]
     Indication: CHRONIC MYELOID LEUKAEMIA
     Route: 048
     Dates: start: 20050628, end: 20050701
  2. GLEEVEC [Suspect]
     Route: 048
     Dates: start: 20050701

REACTIONS (5)
  - DYSPNOEA [None]
  - NON-CARDIAC CHEST PAIN [None]
  - PLEURAL EFFUSION [None]
  - SPLENECTOMY [None]
  - SPLENOMEGALY [None]
